FAERS Safety Report 14335841 (Version 2)
Quarter: 2018Q1

REPORT INFORMATION
  Report Type: Report from Study
  Country: US (occurrence: US)
  Receive Date: 20171229
  Receipt Date: 20180321
  Transmission Date: 20180509
  Serious: Yes (Hospitalization)
  Sender: FDA-Public Use
  Company Number: US-AMGEN-USASP2017190705

PATIENT
  Sex: Female

DRUGS (1)
  1. PROLIA [Suspect]
     Active Substance: DENOSUMAB
     Indication: PRODUCT USED FOR UNKNOWN INDICATION
     Dosage: 60 MG, Q6MO
     Route: 065

REACTIONS (12)
  - Abdominal pain upper [Unknown]
  - Pain in extremity [Unknown]
  - Groin pain [Unknown]
  - Jaw disorder [Unknown]
  - Musculoskeletal chest pain [Unknown]
  - Facial pain [Unknown]
  - Blood pressure decreased [Unknown]
  - Ear pain [Unknown]
  - Drug effect incomplete [Unknown]
  - Sleep disorder due to general medical condition, insomnia type [Unknown]
  - Bone disorder [Not Recovered/Not Resolved]
  - Fall [Unknown]
